FAERS Safety Report 7263563-7 (Version None)
Quarter: 2011Q1

REPORT INFORMATION
  Report Type: 
  Country: None (occurrence: None)
  Receive Date: 20110130
  Receipt Date: 20101216
  Transmission Date: 20110831
  Serious: No
  Sender: FDA-Public Use
  Company Number: US-ABBOTT-10P-163-0682040-00

PATIENT
  Sex: Female
  Weight: 72.186 kg

DRUGS (13)
  1. PENTASA [Concomitant]
     Indication: CROHN'S DISEASE
  2. HUMIRA [Suspect]
     Dates: start: 20100713, end: 20100824
  3. HUMIRA [Suspect]
     Dates: start: 20100901
  4. VICODIN [Concomitant]
     Indication: PAIN
  5. AMBIEN [Concomitant]
     Indication: INSOMNIA
  6. VALIUM [Concomitant]
     Indication: ANXIETY
  7. HUMIRA [Suspect]
     Indication: CROHN'S DISEASE
     Dates: start: 20100401, end: 20100601
  8. OMEPRAZOLE [Concomitant]
     Indication: GASTROOESOPHAGEAL REFLUX DISEASE
  9. PHENERGAN HCL [Concomitant]
     Indication: NAUSEA
  10. PERCOCET [Concomitant]
     Indication: PAIN
  11. PRENATAL VITAMINS [Concomitant]
     Indication: VITAMIN SUPPLEMENTATION
  12. LEXAPRO [Concomitant]
     Indication: DEPRESSION
  13. IMURAN [Suspect]
     Indication: CROHN'S DISEASE

REACTIONS (13)
  - PSORIASIS [None]
  - URINARY TRACT INFECTION [None]
  - DRUG INEFFECTIVE [None]
  - WHITE BLOOD CELL COUNT INCREASED [None]
  - GASTROINTESTINAL DISORDER [None]
  - PNEUMONIA [None]
  - DYSURIA [None]
  - CHILLS [None]
  - PYREXIA [None]
  - PAIN [None]
  - PRODUCTIVE COUGH [None]
  - MICTURITION URGENCY [None]
  - SKIN LESION [None]
